FAERS Safety Report 13948751 (Version 1)
Quarter: 2017Q3

REPORT INFORMATION
  Report Type: Spontaneous
  Country: AR (occurrence: AR)
  Receive Date: 20170908
  Receipt Date: 20170908
  Transmission Date: 20171128
  Serious: Yes (Hospitalization)
  Sender: FDA-Public Use
  Company Number: AR-SA-2017SA164407

PATIENT
  Age: 15 Year
  Sex: Female

DRUGS (1)
  1. CEREZYME [Suspect]
     Active Substance: IMIGLUCERASE
     Indication: GAUCHER^S DISEASE
     Dosage: FREQUENCY- Q2
     Route: 041
     Dates: start: 2008

REACTIONS (3)
  - Weight increased [Unknown]
  - Bone pain [Unknown]
  - Treatment noncompliance [Unknown]
